FAERS Safety Report 19410605 (Version 1)
Quarter: 2021Q2

REPORT INFORMATION
  Report Type: Spontaneous
  Country: US (occurrence: US)
  Receive Date: 20210614
  Receipt Date: 20210614
  Transmission Date: 20210717
  Serious: Yes (Other)
  Sender: FDA-Public Use
  Company Number: NVSC2021US131826

PATIENT
  Age: 60 Year
  Sex: Male

DRUGS (2)
  1. CLOBETASOL PROPIONATE. [Suspect]
     Active Substance: CLOBETASOL PROPIONATE
     Indication: CUTANEOUS T-CELL LYMPHOMA STAGE I
     Dosage: UNK, BID
     Route: 061
  2. CLOBETASOL PROPIONATE. [Suspect]
     Active Substance: CLOBETASOL PROPIONATE
     Dosage: UNK, BID COMBINED WITH NARROWBAND ULTRAVIOLET B PHOTOTHERAPY
     Route: 061

REACTIONS (4)
  - Malignant neoplasm progression [Unknown]
  - Cutaneous T-cell lymphoma stage I [Unknown]
  - Product use in unapproved indication [Unknown]
  - Therapy partial responder [Unknown]
